FAERS Safety Report 5780385-4 (Version None)
Quarter: 2008Q2

REPORT INFORMATION
  Report Type: 
  Country: None (occurrence: None)
  Receive Date: 20080620
  Receipt Date: 20080610
  Transmission Date: 20081010
  Serious: Yes (Hospitalization, Other)
  Sender: FDA-Public Use
  Company Number: SI-NOVOPROD-275644

PATIENT
  Age: 72 Year
  Sex: Male
  Weight: 89 kg

DRUGS (4)
  1. NOVOLOG MIX 70/30 [Suspect]
     Indication: TYPE 2 DIABETES MELLITUS
     Route: 058
     Dates: start: 20070401, end: 20080101
  2. HUMALOG MIX 25 [Suspect]
     Indication: TYPE 2 DIABETES MELLITUS
     Route: 058
     Dates: start: 20080101, end: 20080220
  3. HUMALOG MIX 25 [Suspect]
  4. MIXTARD 30 FLEXPEN [Suspect]
     Indication: TYPE 2 DIABETES MELLITUS
     Route: 058
     Dates: start: 20080220, end: 20080301

REACTIONS (4)
  - ANTI-INSULIN ANTIBODY [None]
  - DYSPNOEA [None]
  - HYPERSENSITIVITY [None]
  - INJECTION SITE URTICARIA [None]
